FAERS Safety Report 7153731-7 (Version None)
Quarter: 2010Q4

REPORT INFORMATION
  Report Type: 
  Country: None (occurrence: None)
  Receive Date: 20101213
  Receipt Date: 20101202
  Transmission Date: 20110411
  Serious: Yes (Hospitalization)
  Sender: FDA-Public Use
  Company Number: JP-ASTRAZENECA-2010SE58121

PATIENT
  Age: 77 Year
  Sex: Male
  Weight: 62 kg

DRUGS (7)
  1. BLOPRESS [Suspect]
     Indication: HYPERTENSION
     Route: 048
     Dates: start: 19980101, end: 20100611
  2. BLOPRESS [Suspect]
     Route: 048
     Dates: start: 20100628, end: 20100803
  3. TAKEPRON [Concomitant]
     Indication: ABDOMINAL PAIN UPPER
     Route: 048
     Dates: start: 19980101
  4. EPADEL [Concomitant]
     Indication: HYPERTENSION
     Route: 048
     Dates: start: 19980101
  5. CARDENALIN [Concomitant]
     Indication: HYPERTENSION
     Route: 048
     Dates: start: 20010101, end: 20100602
  6. SELARA [Concomitant]
     Indication: HYPERTENSION
     Route: 048
     Dates: start: 20010101, end: 20100602
  7. ADALAT CC [Concomitant]
     Indication: HYPERTENSION
     Route: 048
     Dates: end: 20100201

REACTIONS (1)
  - EOSINOPHILIC PUSTULAR FOLLICULITIS [None]
